FAERS Safety Report 19200382 (Version 1)
Quarter: 2021Q2

REPORT INFORMATION
  Report Type: Spontaneous
  Country: US (occurrence: US)
  Receive Date: 20210430
  Receipt Date: 20210430
  Transmission Date: 20210717
  Serious: No
  Sender: FDA-Public Use
  Company Number: None

PATIENT
  Age: 70 Year
  Sex: Male
  Weight: 90 kg

DRUGS (12)
  1. CARVEDILOL. [Concomitant]
     Active Substance: CARVEDILOL
  2. LEVOTHYROXINE SODIUM. [Concomitant]
     Active Substance: LEVOTHYROXINE SODIUM
  3. PREVACID [Concomitant]
     Active Substance: LANSOPRAZOLE
  4. LOSARTAN POTASSIUM. [Concomitant]
     Active Substance: LOSARTAN POTASSIUM
  5. MIRALAX MIX?IN PAX [Concomitant]
  6. PROCHLORPERAZINE MALEATE. [Concomitant]
     Active Substance: PROCHLORPERAZINE MALEATE
  7. MAGNESIUM [Concomitant]
     Active Substance: MAGNESIUM
  8. ZELBORAF [Suspect]
     Active Substance: VEMURAFENIB
     Indication: BENIGN NEOPLASM OF THYROID GLAND
     Route: 048
     Dates: start: 20210403
  9. TAMSULOSIN HCL [Concomitant]
     Active Substance: TAMSULOSIN HYDROCHLORIDE
  10. ASPIRIN 81 [Concomitant]
     Active Substance: ASPIRIN
  11. COLACE [Concomitant]
     Active Substance: DOCUSATE SODIUM
  12. TRAMADOL HCL [Concomitant]
     Active Substance: TRAMADOL HYDROCHLORIDE

REACTIONS (1)
  - Diarrhoea [None]

NARRATIVE: CASE EVENT DATE: 20210405
